FAERS Safety Report 7906977-1 (Version None)
Quarter: 2011Q4

REPORT INFORMATION
  Report Type: 
  Country: None (occurrence: None)
  Receive Date: 20111110
  Receipt Date: 20111103
  Transmission Date: 20120403
  Serious: Yes (Other)
  Sender: FDA-Public Use
  Company Number: AU-JNJFOC-20111102792

PATIENT
  Age: 53 Year
  Sex: Male

DRUGS (5)
  1. XARELTO [Suspect]
     Route: 048
     Dates: start: 20110920, end: 20111003
  2. FLUTICASONE PROPIONATE/SALMETEROL [Concomitant]
  3. CARDIZEM [Concomitant]
  4. XARELTO [Suspect]
     Indication: THROMBOSIS PROPHYLAXIS
     Route: 048
  5. SPIRIVA [Concomitant]

REACTIONS (1)
  - DEEP VEIN THROMBOSIS [None]
